FAERS Safety Report 5441784-3 (Version None)
Quarter: 2007Q3

REPORT INFORMATION
  Report Type: 
  Country: None (occurrence: None)
  Receive Date: 20070814
  Receipt Date: 20070814
  Transmission Date: 20080115
  Serious: Yes (Death)
  Sender: FDA-Public Use
  Company Number: None

PATIENT
  Age: 10 Month
  Sex: Male
  Weight: 5.2 kg

DRUGS (3)
  1. KALETRA [Suspect]
     Indication: HIV INFECTION
     Dosage: 64 MG BD PO
     Route: 048
     Dates: start: 20070703, end: 20070714
  2. LAMIVUDINE [Suspect]
     Indication: HIV INFECTION
     Dosage: 20 MG BD PO
     Route: 048
     Dates: start: 20070703, end: 20070714
  3. ZIDOVUDINE [Suspect]
     Indication: HIV INFECTION
     Dosage: 60 MG BD PO
     Route: 048
     Dates: start: 20070703, end: 20070714

REACTIONS (6)
  - ASPIRATION [None]
  - COUGH [None]
  - CRYING [None]
  - IRON DEFICIENCY ANAEMIA [None]
  - RESPIRATORY ARREST [None]
  - VOMITING [None]
